FAERS Safety Report 5154974-4 (Version None)
Quarter: 2006Q4

REPORT INFORMATION
  Report Type: 
  Country: None (occurrence: None)
  Receive Date: 20061121
  Receipt Date: 20061110
  Transmission Date: 20070319
  Serious: Yes (Hospitalization, Other)
  Sender: FDA-Public Use
  Company Number: US-ELI_LILLY_AND_COMPANY-US200611002150

PATIENT
  Sex: Female

DRUGS (6)
  1. HUMULIN N [Suspect]
     Indication: DIABETES MELLITUS
     Dosage: UNK, EACH MORNING
  2. HUMULIN R [Suspect]
     Indication: DIABETES MELLITUS
     Dosage: 3 U, EACH MORNING
  3. HUMULIN R [Suspect]
     Dosage: UNK, AS NEEDED
  4. HUMULIN R [Suspect]
     Dosage: UNK, EACH EVENING
  5. HUMULIN L [Suspect]
     Indication: DIABETES MELLITUS
     Dosage: 17 U, EACH MORNING
  6. HUMULIN L [Suspect]
     Dosage: 8 U, EACH EVENING

REACTIONS (9)
  - AGGRESSION [None]
  - BLOOD GLUCOSE DECREASED [None]
  - DEPRESSION [None]
  - DISORIENTATION [None]
  - DYSPHAGIA [None]
  - GLARE [None]
  - JOINT DISLOCATION [None]
  - LOSS OF CONSCIOUSNESS [None]
  - SPEECH DISORDER [None]
